FAERS Safety Report 23458830 (Version 1)
Quarter: 2024Q1

REPORT INFORMATION
  Report Type: Spontaneous
  Country: US (occurrence: US)
  Receive Date: 20240131
  Receipt Date: 20240131
  Transmission Date: 20240409
  Serious: No
  Sender: FDA-Public Use
  Company Number: US-SANDOZ-SDZ2024US009166

PATIENT
  Age: 50 Year
  Sex: Female
  Weight: 79.38 kg

DRUGS (1)
  1. ESTRADIOL [Suspect]
     Active Substance: ESTRADIOL
     Indication: Hormone replacement therapy
     Dosage: 0.37 MG N/A DOSE EVERY N/A N/A
     Route: 062
     Dates: start: 20231019, end: 20240127

REACTIONS (3)
  - Rash [Unknown]
  - Pruritus [Unknown]
  - Incorrect dose administered [Unknown]

NARRATIVE: CASE EVENT DATE: 20231215
